FAERS Safety Report 9117248 (Version 1)
Quarter: 2013Q1

REPORT INFORMATION
  Report Type: Spontaneous
  Country: US (occurrence: US)
  Receive Date: 20130225
  Receipt Date: 20130225
  Transmission Date: 20140127
  Serious: Yes (Other)
  Sender: FDA-Public Use
  Company Number: US-JNJFOC-20130102630

PATIENT
  Age: 44 Year
  Sex: Male

DRUGS (7)
  1. REMICADE [Suspect]
     Indication: CROHN^S DISEASE
     Route: 042
  2. REMICADE [Suspect]
     Indication: CROHN^S DISEASE
     Route: 042
     Dates: start: 20121231, end: 20121231
  3. BENADRYL [Concomitant]
     Indication: PREMEDICATION
     Route: 065
     Dates: start: 20121231, end: 20121231
  4. SOLU MEDROL [Concomitant]
     Indication: PREMEDICATION
     Route: 065
  5. TYLENOL [Concomitant]
     Indication: PREMEDICATION
     Route: 065
     Dates: start: 20121231, end: 20121231
  6. PREDNISONE [Concomitant]
     Indication: CROHN^S DISEASE
     Route: 065
  7. LIALDA [Concomitant]
     Indication: CROHN^S DISEASE
     Dosage: 4 TABLETS
     Route: 065

REACTIONS (4)
  - Chest pain [Unknown]
  - Hypertension [Recovered/Resolved with Sequelae]
  - Infusion related reaction [Unknown]
  - Heart rate increased [Unknown]
